FAERS Safety Report 21459621 (Version 1)
Quarter: 2022Q4

REPORT INFORMATION
  Report Type: Spontaneous
  Country: US (occurrence: US)
  Receive Date: 20221014
  Receipt Date: 20221014
  Transmission Date: 20230113
  Serious: No
  Sender: FDA-Public Use
  Company Number: US-ALKERMES INC.-ALK-2022-004976

PATIENT
  Age: 19 Year
  Sex: Female

DRUGS (1)
  1. VIVITROL [Suspect]
     Active Substance: NALTREXONE
     Indication: Substance abuse
     Dosage: 380 MILLIGRAM, Q4WK
     Route: 030
     Dates: start: 202209

REACTIONS (4)
  - Needle issue [Recovered/Resolved]
  - Product physical issue [Recovered/Resolved]
  - Off label use [Not Recovered/Not Resolved]
  - Screaming [Unknown]

NARRATIVE: CASE EVENT DATE: 20190101
